FAERS Safety Report 16133816 (Version 1)
Quarter: 2019Q1

REPORT INFORMATION
  Report Type: Spontaneous
  Country: US (occurrence: US)
  Receive Date: 20190329
  Receipt Date: 20190329
  Transmission Date: 20190418
  Serious: Yes (Disabling, Other)
  Sender: FDA-Public Use
  Company Number: US-JNJFOC-20190338147

PATIENT
  Age: 62 Year
  Sex: Male

DRUGS (1)
  1. INVOKANA [Suspect]
     Active Substance: CANAGLIFLOZIN
     Indication: PRODUCT USED FOR UNKNOWN INDICATION
     Route: 048

REACTIONS (6)
  - Cellulitis [Unknown]
  - Osteomyelitis [Unknown]
  - Skin ulcer [Unknown]
  - Diabetic foot infection [Unknown]
  - Gas gangrene [Unknown]
  - Foot amputation [Unknown]

NARRATIVE: CASE EVENT DATE: 20140729
